FAERS Safety Report 7366728-9 (Version None)
Quarter: 2011Q1

REPORT INFORMATION
  Report Type: 
  Country: None (occurrence: None)
  Receive Date: 20110322
  Receipt Date: 20110311
  Transmission Date: 20110831
  Serious: Yes (Other)
  Sender: FDA-Public Use
  Company Number: US-ROCHE-690668

PATIENT
  Sex: Male
  Weight: 62.6 kg

DRUGS (8)
  1. ACCUTANE [Suspect]
     Route: 065
     Dates: start: 20020901, end: 20030201
  2. ACCUTANE [Suspect]
     Route: 065
     Dates: start: 20010901, end: 20020501
  3. ACCUTANE [Suspect]
     Route: 065
     Dates: start: 20040701, end: 20040901
  4. AMNESTEEM [Suspect]
     Indication: ACNE
     Route: 065
     Dates: start: 20030101, end: 20030501
  5. AMNESTEEM [Suspect]
     Route: 065
     Dates: start: 20040401, end: 20040701
  6. ACCUTANE [Suspect]
     Indication: ACNE
     Route: 065
     Dates: start: 20000801, end: 20010101
  7. AMNESTEEM [Suspect]
     Route: 065
     Dates: start: 20040901, end: 20041001
  8. AMNESTEEM [Suspect]
     Route: 065
     Dates: start: 20041201, end: 20050301

REACTIONS (14)
  - CHOLANGITIS SCLEROSING [None]
  - CROHN'S DISEASE [None]
  - ANAL FISSURE [None]
  - ARTHRALGIA [None]
  - INTESTINAL OBSTRUCTION [None]
  - IRRITABLE BOWEL SYNDROME [None]
  - VISION BLURRED [None]
  - INFLAMMATORY BOWEL DISEASE [None]
  - DEPRESSION [None]
  - OEDEMA PERIPHERAL [None]
  - COLITIS ULCERATIVE [None]
  - ANAEMIA [None]
  - LIVER DISORDER [None]
  - CHRONIC FATIGUE SYNDROME [None]
